FAERS Safety Report 7854944 (Version 7)
Quarter: 2013Q2

REPORT INFORMATION
  Report Type: Spontaneous
  Country: US (occurrence: None)
  Receive Date: 20110217
  Receipt Date: 20130610
  Transmission Date: 20140414
  Serious: Yes (Death, Life-Threatening, Other)
  Sender: FDA-Public Use
  Company Number: US-2011-10043

PATIENT
  Age: 68 Year
  Sex: Male

DRUGS (26)
  1. BUSULFAN [Suspect]
     Indication: LYMPHOMA
     Route: 042
     Dates: start: 20110111, end: 20110112
  2. ETOPOSIDE (ETOPOSIDE) [Concomitant]
  3. CYCLOPHOSPHAMIDE (CYCLOPHOSPHAMIDE) [Concomitant]
  4. ADVAIR HFA [Concomitant]
  5. AMLODIPINE [Concomitant]
  6. CITALOPRAM HYDROBROMIDE [Concomitant]
  7. LORAZEPAM [Concomitant]
  8. BENADRYL [Concomitant]
  9. ONDANSETRON [Concomitant]
  10. SIMVASTATIN [Concomitant]
  11. TRAZODONE HYDROCHLORIDE [Concomitant]
  12. KEPPRA [Concomitant]
  13. TRIMETHOPRIM [Concomitant]
  14. ALLOPURINOL [Concomitant]
  15. OMEPRAZOLE [Concomitant]
  16. URSODIOL (URSODEOXYCHLOLIC ACID) [Concomitant]
  17. FUROSEMIDE (FUROSEMIDE) [Concomitant]
  18. ZOCOR [Concomitant]
  19. CEFEPIME (CEFEPIME HYDROCHLORIDE) [Concomitant]
  20. OXYCODONE (OXYCODONE) [Concomitant]
  21. SENNA ALEXANDRIA EXTRACT W/DOCUSATE SODIUM (DOSCUSATE SODIUM, SENNOSIDE A+B) [Concomitant]
  22. DEXAMETHASONE (DEXAMETHASONE) [Concomitant]
  23. DOCUSATE CALCIUM (DOCUSATE CALCIUM) [Concomitant]
  24. IBUPROFEN (IBUPROFEN) [Concomitant]
  25. NACL (NACL) [Concomitant]
  26. PROMETHAZINE HYDROCHLORIDE [Concomitant]

REACTIONS (17)
  - Cardio-respiratory arrest [None]
  - Pulseless electrical activity [None]
  - Hepatosplenomegaly [None]
  - Cardiomegaly [None]
  - Thrombocytopenia [None]
  - Neutropenia [None]
  - Hypoalbuminaemia [None]
  - Diarrhoea [None]
  - Ventricular extrasystoles [None]
  - Anaemia [None]
  - Sudden cardiac death [None]
  - Pulmonary embolism [None]
  - Delirium [None]
  - Mental status changes [None]
  - Psychotic disorder [None]
  - Blood creatinine increased [None]
  - Condition aggravated [None]
